FAERS Safety Report 15037493 (Version 1)
Quarter: 2018Q2

REPORT INFORMATION
  Report Type: Spontaneous
  Country: US (occurrence: US)
  Receive Date: 20180620
  Receipt Date: 20180620
  Transmission Date: 20180711
  Serious: Yes (Hospitalization, Other)
  Sender: FDA-Public Use
  Company Number: US-OTSUKA-2018_007192

PATIENT
  Sex: Male

DRUGS (2)
  1. ABILIFY [Suspect]
     Active Substance: ARIPIPRAZOLE
     Indication: CATATONIA
     Dosage: UNK
     Route: 065
     Dates: start: 2018, end: 2018
  2. ABILIFY MAINTENA [Suspect]
     Active Substance: ARIPIPRAZOLE
     Indication: PRODUCT USED FOR UNKNOWN INDICATION
     Dosage: 400 MG, ONCE
     Route: 065
     Dates: start: 2018

REACTIONS (6)
  - Bacteraemia [Unknown]
  - Pulmonary embolism [Unknown]
  - Small intestinal obstruction [Unknown]
  - Catatonia [Unknown]
  - Product use in unapproved indication [Unknown]
  - Disease recurrence [Unknown]

NARRATIVE: CASE EVENT DATE: 2018
